FAERS Safety Report 4288631-3 (Version None)
Quarter: 2004Q1

REPORT INFORMATION
  Report Type: 
  Country: None (occurrence: None)
  Receive Date: 20040205
  Receipt Date: 20040128
  Transmission Date: 20041129
  Serious: Yes (Death)
  Sender: FDA-Public Use
  Company Number: 2004005731

PATIENT

DRUGS (2)
  1. DIPHENHYDRAMINE HCL [Suspect]
     Dosage: UNSPECIFIED, ORAL
     Route: 048
  2. CODEINE (CODEINE) [Suspect]
     Dosage: UNSPECIFIED, ORAL
     Route: 048

REACTIONS (1)
  - DRUG SCREEN POSITIVE [None]
